FAERS Safety Report 13769495 (Version 2)
Quarter: 2017Q3

REPORT INFORMATION
  Report Type: Spontaneous
  Country: RU (occurrence: RU)
  Receive Date: 20170719
  Receipt Date: 20170823
  Transmission Date: 20171127
  Serious: Yes (Other)
  Sender: FDA-Public Use
  Company Number: RU-ASTRAZENECA-2017SE73122

PATIENT
  Age: 33 Year
  Sex: Female

DRUGS (3)
  1. LYNPARZA [Suspect]
     Active Substance: OLAPARIB
     Indication: BREAST CANCER FEMALE
     Dosage: LYNPARZA TURKISH MANUFACTURE 2 PACKAGE
     Route: 048
  2. LYNPARZA [Suspect]
     Active Substance: OLAPARIB
     Indication: BREAST CANCER FEMALE
     Dosage: 6 TABLETS IN THE MORNING AND 6 TABLETS IN THE EVENING
     Route: 048
     Dates: end: 20170705
  3. LYNPARZA [Suspect]
     Active Substance: OLAPARIB
     Indication: BREAST CANCER FEMALE
     Dosage: LINPARZA 50 MG RUSSIAN MANUFACTURE
     Route: 048

REACTIONS (2)
  - Drug ineffective [Unknown]
  - Metastasis [Unknown]
